FAERS Safety Report 6836383-2 (Version None)
Quarter: 2010Q3

REPORT INFORMATION
  Report Type: 
  Country: None (occurrence: None)
  Receive Date: 20100713
  Receipt Date: 20100630
  Transmission Date: 20110219
  Serious: Yes (Life-Threatening)
  Sender: FDA-Public Use
  Company Number: CH-ELI_LILLY_AND_COMPANY-CH201007000429

PATIENT
  Age: 45 Year
  Sex: Male

DRUGS (11)
  1. ZYPREXA [Suspect]
     Indication: SCHIZOPHRENIA
     Dosage: 15 MG, DAILY (1/D)
     Dates: start: 20010101, end: 20091201
  2. ZYPREXA [Suspect]
     Dosage: 15 MG, DAILY (1/D)
     Dates: start: 20100423
  3. ZYPREXA [Suspect]
     Dosage: 20 MG, DAILY (1/D)
     Dates: end: 20100526
  4. METHADONE HCL [Concomitant]
     Indication: SUBSTANCE ABUSE
     Dosage: 75 MG, DAILY (1/D)
     Route: 048
     Dates: start: 19910101, end: 20100402
  5. METHADONE HCL [Concomitant]
     Dosage: 35 MG, DAILY (1/D)
     Route: 048
     Dates: start: 20100505, end: 20100531
  6. SOLIAN [Concomitant]
     Indication: SCHIZOPHRENIA
     Dosage: 200 MG, 2/D
     Route: 048
     Dates: start: 20100526
  7. ALDACTONE [Concomitant]
     Indication: ACUTE HEPATIC FAILURE
     Dosage: 150 MG, DAILY (1/D)
     Route: 048
     Dates: start: 20100516
  8. TOREM [Concomitant]
     Indication: ACUTE HEPATIC FAILURE
     Dosage: 20 MG, DAILY (1/D)
     Route: 048
     Dates: start: 20100516
  9. KONAKION [Concomitant]
     Indication: ACUTE HEPATIC FAILURE
     Dosage: 10 MG, EVERY THREE DAYS
     Route: 048
     Dates: start: 20100516
  10. IMPORTAL [Concomitant]
     Indication: ACUTE HEPATIC FAILURE
     Dosage: 20 ML, 3/D
     Route: 048
     Dates: start: 20100516
  11. LORAZEPAM [Concomitant]
     Dosage: 2.5 MG, 4/D
     Route: 048

REACTIONS (5)
  - ANAEMIA [None]
  - ELECTROCARDIOGRAM QT PROLONGED [None]
  - LEUKOPENIA [None]
  - NEUTROPENIA [None]
  - THROMBOCYTOPENIA [None]
